FAERS Safety Report 19765907 (Version 1)
Quarter: 2021Q3

REPORT INFORMATION
  Report Type: Spontaneous
  Country: IL (occurrence: IL)
  Receive Date: 20210830
  Receipt Date: 20210830
  Transmission Date: 20211014
  Serious: Yes (Life-Threatening, Hospitalization, Other)
  Sender: FDA-Public Use
  Company Number: IL-009507513-2108ISR006935

PATIENT
  Age: 65 Year
  Sex: Male

DRUGS (5)
  1. RAMIPRIL. [Concomitant]
     Active Substance: RAMIPRIL
  2. CARBOPLATIN. [Concomitant]
     Active Substance: CARBOPLATIN
     Indication: CHEMOTHERAPY
  3. PACLITAXEL. [Concomitant]
     Active Substance: PACLITAXEL
  4. AMLODIPINE [Concomitant]
     Active Substance: AMLODIPINE BESYLATE
  5. PEMBROLIZUMAB. [Suspect]
     Active Substance: PEMBROLIZUMAB
     Indication: NON-SMALL CELL LUNG CANCER METASTATIC
     Dosage: 200 MILLIGRAM

REACTIONS (5)
  - Toxic epidermal necrolysis [Recovered/Resolved]
  - Immune-mediated oesophagitis [Recovered/Resolved]
  - Immune-mediated myocarditis [Recovered/Resolved]
  - Product use in unapproved indication [Unknown]
  - Immune-mediated gastritis [Recovered/Resolved]
